FAERS Safety Report 6023676-4 (Version None)
Quarter: 2008Q4

REPORT INFORMATION
  Report Type: 
  Country: None (occurrence: None)
  Receive Date: 20081229
  Receipt Date: 20081229
  Transmission Date: 20090506
  Serious: Yes (Death, Life-Threatening, Hospitalization, Disabling, Congenital Anomaly, Other)
  Sender: FDA-Public Use
  Company Number: None

PATIENT

DRUGS (1)
  1. GABAPENTIN [Suspect]
     Indication: INSOMNIA
     Dosage: 3 400 MG. CAPSULES 3 X DAILY PO
     Route: 048
     Dates: start: 20081220, end: 20081223

REACTIONS (2)
  - POOR QUALITY SLEEP [None]
  - PRODUCT QUALITY ISSUE [None]
